FAERS Safety Report 8778945 (Version 1)
Quarter: 2012Q4

REPORT INFORMATION
  Report Type: 
  Country: US (occurrence: US)
  Receive Date: 20120912
  Receipt Date: 20120912
  Transmission Date: 20130627
  Serious: Yes (Other)
  Sender: FDA-Public Use
  Company Number: US-ELI_LILLY_AND_COMPANY-US201209002216

PATIENT
  Sex: Female

DRUGS (5)
  1. PROZAC [Suspect]
     Dosage: 40 mg, UNK
  2. SYMBYAX [Suspect]
     Dosage: 1 DF, UNK
  3. WELLBUTRIN [Concomitant]
     Dosage: UNK
  4. AMBIEN [Concomitant]
  5. XANAX [Concomitant]
     Dosage: 1 DF, prn

REACTIONS (1)
  - Weight increased [Unknown]
